FAERS Safety Report 23932625 (Version 1)
Quarter: 2024Q2

REPORT INFORMATION
  Report Type: Spontaneous
  Country: US (occurrence: US)
  Receive Date: 20240603
  Receipt Date: 20240603
  Transmission Date: 20240715
  Serious: No
  Sender: FDA-Public Use
  Company Number: US-009507513-2405USA007426

PATIENT

DRUGS (2)
  1. STERILE DILUENT (WATER) [Suspect]
     Active Substance: WATER
     Dosage: FIRST DOSE
     Dates: start: 20240520
  2. PROQUAD [Suspect]
     Active Substance: MEASLES VIRUS STRAIN ENDERS^ ATTENUATED EDMONSTON LIVE ANTIGEN\MUMPS VIRUS STRAIN B LEVEL JERYL LYNN
     Indication: Prophylaxis
     Dates: start: 20240520

REACTIONS (5)
  - Syringe issue [Unknown]
  - Device connection issue [Unknown]
  - Complication of device removal [Unknown]
  - Poor quality device used [Unknown]
  - No adverse event [Unknown]

NARRATIVE: CASE EVENT DATE: 20240520
